FAERS Safety Report 9735256 (Version 2)
Quarter: 2013Q4

REPORT INFORMATION
  Report Type: Spontaneous
  Country: FR (occurrence: None)
  Receive Date: 20131204
  Receipt Date: 20131218
  Transmission Date: 20140711
  Serious: Yes (Hospitalization)
  Sender: FDA-Public Use
  Company Number: SYM-2013-13396

PATIENT
  Age: 90 Year
  Sex: Male

DRUGS (14)
  1. FLAGYL (METRONIDAZOLE) (METRONIDAZOLE) [Suspect]
     Indication: PNEUMONIA
     Route: 042
     Dates: start: 20130909, end: 20130921
  2. TAVANIC (LEVOFLOXACIN (LEVOFLOXACIN) [Suspect]
     Indication: PNEUMONIA
     Route: 042
     Dates: start: 20130907, end: 20130909
  3. PREVISCAN (FLUINDIONE) (FLUINDIONE) [Suspect]
     Route: 048
     Dates: end: 20130909
  4. ROCEPHINE (CEFTRIAXONE SODIUM) (CETRIAXONE SODIUM) [Suspect]
     Indication: PNEUMONIA
     Route: 042
     Dates: start: 20130909, end: 20130921
  5. FORLAX [Concomitant]
  6. CORDARONE (AMIODARONE HYDROCHLORIDE) (AMIODARONE HYDROCHLORIDE) [Concomitant]
  7. LOVENOX (ENOXAPARIN SODIUM) (ENOXAPARIN SODIUM) [Concomitant]
  8. LEVOTHYROX (LEVOTHYROXINE SODIUM) (LEVOTHYROXINE SODIUM) [Concomitant]
  9. LASILIX (FUROSEMIDE) (FUROSEMIDE) [Concomitant]
  10. AVODART (DUTASTERIDE) (DUTASTERIDE) [Concomitant]
  11. OMEXEL (TAMSULOSIN HYDROCHLORIDE) (TAMSULOSIN HYDROCHLORIDE) [Concomitant]
  12. XATRAL (ALFUZOSIN HYDROCHLORIDE) (ALFUZOSIN HYDROCHLORIDE) [Concomitant]
  13. DOLIPRANE (PARACETAMOL) (PARACETAMOL) [Concomitant]
  14. AUGMENTIN (AMOXI-CLAVULANICO) (AMOXICILLIN, CLAVULANIC ACID)? [Concomitant]

REACTIONS (2)
  - Overdose [None]
  - International normalised ratio increased [None]
